FAERS Safety Report 19729396 (Version 3)
Quarter: 2021Q3

REPORT INFORMATION
  Report Type: Spontaneous
  Country: FR (occurrence: FR)
  Receive Date: 20210820
  Receipt Date: 20210914
  Transmission Date: 20211014
  Serious: Yes (Life-Threatening, Hospitalization, Other)
  Sender: FDA-Public Use
  Company Number: FR-VALIDUS PHARMACEUTICALS LLC-FR-VDP-2021-000340

PATIENT
  Age: 56 Year
  Sex: Male
  Weight: 100 kg

DRUGS (21)
  1. STELARA [Suspect]
     Active Substance: USTEKINUMAB
     Indication: PSORIASIS
     Dosage: 45 MG, Q4W
     Route: 058
     Dates: start: 20170126, end: 20170226
  2. HUMIRA [Suspect]
     Active Substance: ADALIMUMAB
     Indication: PSORIASIS
     Dosage: 80 MILLIGRAM, QWK
     Route: 058
     Dates: start: 20130531, end: 20130630
  3. DOVOBET [Suspect]
     Active Substance: BETAMETHASONE\CALCIPOTRIENE
     Dosage: UNK
     Route: 065
     Dates: start: 20190408
  4. TALTZ [Suspect]
     Active Substance: IXEKIZUMAB
     Indication: PSORIASIS
     Dosage: 160 MG, QOW
     Route: 058
     Dates: start: 20190408
  5. CICLOPIROX OLAMINE. [Suspect]
     Active Substance: CICLOPIROX OLAMINE
     Indication: PSORIASIS
     Dosage: UNK
     Route: 065
     Dates: start: 20161219
  6. BETAMETHASONE DIPROPIONATE. [Suspect]
     Active Substance: BETAMETHASONE DIPROPIONATE
     Dosage: UNK
     Route: 065
     Dates: start: 20161219
  7. HUMIRA [Suspect]
     Active Substance: ADALIMUMAB
     Dosage: 40 MG, QOW
     Route: 058
     Dates: start: 20130630, end: 20160928
  8. STELARA [Suspect]
     Active Substance: USTEKINUMAB
     Dosage: 45 MG, ONCE EVERY 14 WEEKS
     Route: 048
     Dates: start: 20180110
  9. CLOBETASOL PROPIONATE. [Suspect]
     Active Substance: CLOBETASOL PROPIONATE
     Dosage: UNK
     Route: 065
     Dates: start: 20180108, end: 20190408
  10. METHOTREXATE. [Suspect]
     Active Substance: METHOTREXATE
     Indication: PSORIASIS
     Dosage: 15 MILLIGRAM, QWK
     Route: 048
     Dates: start: 2013, end: 2013
  11. BETAMETHASONE DIPROPIONATE. [Suspect]
     Active Substance: BETAMETHASONE DIPROPIONATE
     Dosage: UNK
     Route: 065
     Dates: start: 20190408
  12. TALTZ [Suspect]
     Active Substance: IXEKIZUMAB
     Indication: MYOCARDIAL INFARCTION
  13. DEMEROL [Suspect]
     Active Substance: MEPERIDINE HYDROCHLORIDE
     Indication: PSORIASIS
     Dosage: UNK
     Route: 065
     Dates: start: 20161219
  14. CLOBETASOL PROPIONATE. [Suspect]
     Active Substance: CLOBETASOL PROPIONATE
     Indication: PSORIASIS
     Dosage: UNK
     Route: 065
     Dates: start: 20161219
  15. BETAMETHASONE DIPROPIONATE. [Suspect]
     Active Substance: BETAMETHASONE DIPROPIONATE
     Indication: PSORIASIS
     Dosage: UNK
     Route: 065
     Dates: start: 20161216
  16. ACITRETIN. [Suspect]
     Active Substance: ACITRETIN
     Indication: PSORIASIS
     Dosage: UNK
     Route: 065
  17. CICLOPIROX OLAMINE. [Suspect]
     Active Substance: CICLOPIROX OLAMINE
     Dosage: UNK
     Route: 065
     Dates: start: 20180108
  18. GLYCEROL;PARAFFIN, LIQUID;PETROLATUM [Suspect]
     Active Substance: GLYCERIN\MINERAL OIL\PETROLATUM
     Indication: PSORIASIS
     Dosage: UNK
     Route: 065
     Dates: start: 20161219
  19. STELARA [Suspect]
     Active Substance: USTEKINUMAB
     Dosage: 45 MG, Q12W
     Route: 058
     Dates: start: 20170226, end: 20180110
  20. DOVOBET [Suspect]
     Active Substance: BETAMETHASONE\CALCIPOTRIENE
     Indication: PSORIASIS
     Dosage: UNK
     Route: 065
     Dates: start: 20161216
  21. DOVOBET [Suspect]
     Active Substance: BETAMETHASONE\CALCIPOTRIENE
     Dosage: UNK
     Route: 065
     Dates: start: 20161219

REACTIONS (3)
  - Angioplasty [Recovered/Resolved]
  - Type 2 diabetes mellitus [Recovered/Resolved]
  - Myocardial infarction [Recovered/Resolved]

NARRATIVE: CASE EVENT DATE: 2018
